FAERS Safety Report 23113450 (Version 1)
Quarter: 2023Q4

REPORT INFORMATION
  Report Type: Spontaneous
  Country: US (occurrence: US)
  Receive Date: 20231027
  Receipt Date: 20231027
  Transmission Date: 20240110
  Serious: No
  Sender: FDA-Public Use
  Company Number: US-BRISTOL-MYERS SQUIBB COMPANY-2023-152810

PATIENT
  Age: 80 Year
  Sex: Female
  Weight: 54.43 kg

DRUGS (20)
  1. REVLIMID [Suspect]
     Active Substance: LENALIDOMIDE
     Indication: Plasma cell myeloma
     Dosage: 21D ON W 7D OF
     Route: 048
  2. CALCIUM CARBONATE [Concomitant]
     Active Substance: CALCIUM CARBONATE
     Indication: Product used for unknown indication
     Route: 048
     Dates: start: 20220810
  3. BENAZEPRIL HYDROCHLORIDE [Concomitant]
     Active Substance: BENAZEPRIL HYDROCHLORIDE
     Indication: Product used for unknown indication
     Route: 048
     Dates: start: 20211119, end: 20220810
  4. DEXAMETHASONE [Concomitant]
     Active Substance: DEXAMETHASONE
     Indication: Product used for unknown indication
     Route: 048
     Dates: start: 20211119
  5. GABAPENTIN [Concomitant]
     Active Substance: GABAPENTIN
     Indication: Product used for unknown indication
     Route: 048
     Dates: start: 20211119, end: 20220810
  6. MAGNESIUM OXIDE [Concomitant]
     Active Substance: MAGNESIUM OXIDE
     Indication: Product used for unknown indication
     Route: 048
     Dates: start: 20220810
  7. METOPROLOL SUCCINATE [Concomitant]
     Active Substance: METOPROLOL SUCCINATE
     Indication: Product used for unknown indication
     Route: 048
     Dates: start: 20211119
  8. NINLARO [Concomitant]
     Active Substance: IXAZOMIB CITRATE
     Indication: Product used for unknown indication
     Route: 048
     Dates: start: 20211119, end: 20211123
  9. OXYCODONE HYDROCHLORIDE [Concomitant]
     Active Substance: OXYCODONE HYDROCHLORIDE
     Indication: Product used for unknown indication
     Dosage: 5MG/5ML
     Route: 048
     Dates: start: 20211123
  10. POMALYST [Concomitant]
     Active Substance: POMALIDOMIDE
     Indication: Product used for unknown indication
     Dosage: 5MG/5ML
     Route: 048
     Dates: start: 20220823, end: 20220907
  11. POMALYST [Concomitant]
     Active Substance: POMALIDOMIDE
     Dosage: 5MG/5ML
     Route: 048
     Dates: start: 20220907, end: 20221005
  12. POMALYST [Concomitant]
     Active Substance: POMALIDOMIDE
     Dosage: 5MG/5ML
     Route: 048
     Dates: start: 20230426, end: 20230530
  13. POMALYST [Concomitant]
     Active Substance: POMALIDOMIDE
     Dosage: 5MG/5ML
     Route: 048
     Dates: start: 20230530, end: 20230623
  14. POMALYST [Concomitant]
     Active Substance: POMALIDOMIDE
     Dosage: 5MG/5ML
     Route: 048
     Dates: start: 20230623, end: 20230721
  15. POMALYST [Concomitant]
     Active Substance: POMALIDOMIDE
     Dosage: 5MG/5ML
     Route: 048
     Dates: start: 20230721, end: 20230811
  16. POMALYST [Concomitant]
     Active Substance: POMALIDOMIDE
     Dosage: 5MG/5ML
     Route: 048
     Dates: start: 20230811, end: 20230915
  17. POMALYST [Concomitant]
     Active Substance: POMALIDOMIDE
     Dosage: 5MG/5ML
     Route: 048
     Dates: start: 20230915, end: 20231016
  18. POMALYST [Concomitant]
     Active Substance: POMALIDOMIDE
     Dosage: 5MG/5ML
     Route: 048
     Dates: start: 20231016
  19. CHOLECALCIFEROL [Concomitant]
     Active Substance: CHOLECALCIFEROL
     Indication: Product used for unknown indication
     Dosage: 5MG/5ML
     Route: 048
     Dates: start: 20220810
  20. XANAX [Concomitant]
     Active Substance: ALPRAZOLAM
     Indication: Product used for unknown indication
     Dosage: 5MG/5ML
     Route: 048
     Dates: start: 20211119, end: 20211123

REACTIONS (1)
  - Upper respiratory tract infection [Recovering/Resolving]
